FAERS Safety Report 5875061-3 (Version None)
Quarter: 2008Q3

REPORT INFORMATION
  Report Type: 
  Country: None (occurrence: None)
  Receive Date: 20080904
  Receipt Date: 20080825
  Transmission Date: 20090109
  Serious: Yes (Other)
  Sender: FDA-Public Use
  Company Number: 2008AP002154

PATIENT
  Age: 66 Year
  Sex: Female

DRUGS (7)
  1. TERBINAFINE HCL [Suspect]
     Indication: DERMATOPHYTOSIS
     Dosage: 250 MG; QD; PO
     Route: 048
     Dates: start: 20080624, end: 20080721
  2. ATENOLOL [Concomitant]
  3. METFORMIN HCL [Concomitant]
  4. ROSIGLITAZONE [Concomitant]
  5. BENDROFLUMETHIAZIDE (BENDROFLUMETHIAZIDE) [Concomitant]
  6. IRBESARTAN [Concomitant]
  7. SIMVASTATIN [Concomitant]

REACTIONS (1)
  - DERMATITIS EXFOLIATIVE [None]
